FAERS Safety Report 5287869-6 (Version None)
Quarter: 2007Q2

REPORT INFORMATION
  Report Type: 
  Country: None (occurrence: None)
  Receive Date: 20070405
  Receipt Date: 20070329
  Transmission Date: 20071010
  Serious: Yes (Hospitalization)
  Sender: FDA-Public Use
  Company Number: NO-SHR-NO-2007-011561

PATIENT
  Age: 28 Year
  Sex: Female

DRUGS (1)
  1. LEVONORGESTREL [Suspect]
     Indication: CONTRACEPTION
     Dosage: 20 A?G/DAY, CONT
     Route: 015
     Dates: start: 20020926

REACTIONS (4)
  - DEPRESSION [None]
  - INTRA-UTERINE CONTRACEPTIVE DEVICE EXPELLED [None]
  - PRE-ECLAMPSIA [None]
  - UNINTENDED PREGNANCY [None]
